FAERS Safety Report 9732460 (Version 1)
Quarter: 2013Q4

REPORT INFORMATION
  Report Type: Spontaneous
  Country: US (occurrence: US)
  Receive Date: 20131205
  Receipt Date: 20131205
  Transmission Date: 20140711
  Serious: No
  Sender: FDA-Public Use
  Company Number: US-PFIZER INC-2013346422

PATIENT
  Sex: Male

DRUGS (2)
  1. ZOLOFT [Suspect]
     Dosage: 200 MG, UNK
  2. PAROXETINE [Suspect]
     Dosage: 40, UNK

REACTIONS (4)
  - Tooth disorder [Unknown]
  - Drug intolerance [Unknown]
  - Drug prescribing error [Unknown]
  - Drug ineffective [Unknown]
